FAERS Safety Report 16777437 (Version 1)
Quarter: 2019Q3

REPORT INFORMATION
  Report Type: Spontaneous
  Country: US (occurrence: US)
  Receive Date: 20190905
  Receipt Date: 20190905
  Transmission Date: 20191005
  Serious: No
  Sender: FDA-Public Use
  Company Number: US-B.I. PHARMACEUTICALS,INC./RIDGEFIELD-2019-BI-033133

PATIENT
  Age: 41 Year
  Sex: Male

DRUGS (8)
  1. CRIXIVAN [Suspect]
     Active Substance: INDINAVIR SULFATE
     Indication: HIV INFECTION
     Route: 065
  2. MEGACE [Suspect]
     Active Substance: MEGESTROL ACETATE
     Indication: HIV INFECTION
     Route: 065
  3. VIRAMUNE [Suspect]
     Active Substance: NEVIRAPINE
     Indication: PRODUCT USED FOR UNKNOWN INDICATION
     Route: 065
  4. VIRACEPT [Suspect]
     Active Substance: NELFINAVIR MESYLATE
     Indication: HIV INFECTION
     Route: 065
  5. D4T [Suspect]
     Active Substance: STAVUDINE
     Indication: HIV INFECTION
     Route: 065
  6. DDL (DICLOFENAC DIETHYLAMINE) [Suspect]
     Active Substance: DICLOFENAC DIETHYLAMINE
     Indication: HIV INFECTION
     Route: 065
  7. BACTRIM [Suspect]
     Active Substance: SULFAMETHOXAZOLE\TRIMETHOPRIM
     Indication: HIV INFECTION
     Route: 065
  8. AZT [Suspect]
     Active Substance: ZIDOVUDINE
     Indication: HIV INFECTION
     Route: 065

REACTIONS (5)
  - Fatigue [Unknown]
  - Diarrhoea [Unknown]
  - Nausea [Unknown]
  - Vomiting [Unknown]
  - Decreased appetite [Unknown]
